FAERS Safety Report 7601920-7 (Version None)
Quarter: 2011Q3

REPORT INFORMATION
  Report Type: 
  Country: None (occurrence: None)
  Receive Date: 20110711
  Receipt Date: 20110705
  Transmission Date: 20111222
  Serious: Yes (Congenital Anomaly, Other)
  Sender: FDA-Public Use
  Company Number: US-PFIZER INC-2007095367

PATIENT
  Sex: Female
  Weight: 3.4 kg

DRUGS (11)
  1. PRILOSEC [Concomitant]
     Route: 064
  2. HYDROCORTISONE [Concomitant]
     Dosage: UNK
     Route: 064
  3. SUDAFED 12 HOUR [Concomitant]
     Dosage: UNK
     Route: 064
  4. TYLENOL-500 [Concomitant]
     Dosage: UNK
     Route: 064
  5. ZITHROMAX [Concomitant]
     Dosage: UNK
     Route: 064
  6. AURALGAN [Concomitant]
     Dosage: UNK
     Route: 064
  7. ZANTAC [Concomitant]
     Route: 064
  8. ZOLOFT [Suspect]
     Dosage: 100 MG, UNK
     Route: 064
  9. KEFLEX [Concomitant]
     Dosage: UNK
     Route: 064
  10. PREVACID [Concomitant]
     Dosage: UNK
     Route: 064
  11. ELIDEL [Concomitant]
     Indication: ECZEMA
     Dosage: UNK
     Route: 064

REACTIONS (2)
  - MATERNAL EXPOSURE DURING PREGNANCY [None]
  - EBSTEIN'S ANOMALY [None]
